FAERS Safety Report 9036566 (Version 1)
Quarter: 2013Q1

REPORT INFORMATION
  Report Type: Report from Study
  Country: US (occurrence: US)
  Receive Date: 20130129
  Receipt Date: 20130129
  Transmission Date: 20140127
  Serious: No
  Sender: FDA-Public Use
  Company Number: US-ABBOTT-12P-163-0895912-00

PATIENT
  Sex: Male
  Weight: 120.31 kg

DRUGS (8)
  1. HUMIRA 40 MG/0.8 ML PEN [Suspect]
     Indication: RHEUMATOID ARTHRITIS
     Dosage: ON HOLD BECAUSE OF EVENT
     Dates: start: 201111
  2. METHOTREXATE [Concomitant]
     Indication: RHEUMATOID ARTHRITIS
  3. LEVOTHYROXINE [Concomitant]
     Indication: HYPOTHYROIDISM
  4. PREDNISONE [Concomitant]
     Indication: RHEUMATOID ARTHRITIS
  5. SIMVASTATIN [Concomitant]
     Indication: BLOOD CHOLESTEROL INCREASED
  6. RAMIPRIL [Concomitant]
     Indication: HYPERTENSION
  7. WELLBUTRIN [Concomitant]
     Indication: DEPRESSION
  8. ASPIRIN [Concomitant]
     Indication: CARDIOVASCULAR EVENT PROPHYLAXIS

REACTIONS (2)
  - Cough [Recovered/Resolved]
  - Rheumatoid arthritis [Not Recovered/Not Resolved]
